FAERS Safety Report 6613157-9 (Version None)
Quarter: 2010Q1

REPORT INFORMATION
  Report Type: 
  Country: None (occurrence: None)
  Receive Date: 20100304
  Receipt Date: 20100219
  Transmission Date: 20100710
  Serious: Yes (Hospitalization)
  Sender: FDA-Public Use
  Company Number: US-JNJFOC-20100210377

PATIENT
  Age: 21 Month
  Sex: Male

DRUGS (2)
  1. CHILDRENS TYLENOL PLUS COLD AND COUGH [Suspect]
     Indication: NASOPHARYNGITIS
     Dosage: (5-7.5ML PER DOSE)
     Route: 048
  2. ACETAMINOPHEN [Suspect]
     Indication: RASH
     Route: 048

REACTIONS (2)
  - HALLUCINATION, TACTILE [None]
  - HALLUCINATION, VISUAL [None]
